FAERS Safety Report 15342989 (Version 1)
Quarter: 2018Q3

REPORT INFORMATION
  Report Type: Report from Study
  Country: GB (occurrence: GB)
  Receive Date: 20180903
  Receipt Date: 20180903
  Transmission Date: 20181010
  Serious: Yes (Other)
  Sender: FDA-Public Use
  Company Number: GB-UCBSA-2018038105

PATIENT

DRUGS (3)
  1. LEVETIRACETAM. [Suspect]
     Active Substance: LEVETIRACETAM
     Indication: PRODUCT USED FOR UNKNOWN INDICATION
  2. TEGRETOL [Concomitant]
     Active Substance: CARBAMAZEPINE
     Indication: PRODUCT USED FOR UNKNOWN INDICATION
  3. LAMICTAL [Concomitant]
     Active Substance: LAMOTRIGINE
     Indication: PRODUCT USED FOR UNKNOWN INDICATION

REACTIONS (10)
  - Obsessive-compulsive disorder [Unknown]
  - Anger [Unknown]
  - Deja vu [Unknown]
  - Hallucination, auditory [Unknown]
  - Depression [Unknown]
  - Petit mal epilepsy [Unknown]
  - Hallucination, olfactory [Unknown]
  - Paralysis [Unknown]
  - Balance disorder [Unknown]
  - Labyrinthitis [Unknown]
